FAERS Safety Report 12588034 (Version 1)
Quarter: 2016Q3

REPORT INFORMATION
  Report Type: Spontaneous
  Country: GB (occurrence: GB)
  Receive Date: 20160725
  Receipt Date: 20160725
  Transmission Date: 20161109
  Serious: Yes (Other)
  Sender: FDA-Public Use
  Company Number: GB-PFIZER INC-2016354362

PATIENT
  Age: 41 Year
  Sex: Female
  Weight: 53.52 kg

DRUGS (1)
  1. VENLAFAXINE HCL [Suspect]
     Active Substance: VENLAFAXINE HYDROCHLORIDE
     Indication: DEPRESSION
     Dosage: 150 MG, UNK
     Route: 048
     Dates: end: 20160710

REACTIONS (5)
  - Nausea [Unknown]
  - Withdrawal syndrome [Not Recovered/Not Resolved]
  - Tearfulness [Unknown]
  - Suicidal ideation [Unknown]
  - Paraesthesia [Unknown]
